FAERS Safety Report 5060535-8 (Version None)
Quarter: 2006Q3

REPORT INFORMATION
  Report Type: 
  Country: None (occurrence: None)
  Receive Date: 20060720
  Receipt Date: 20060710
  Transmission Date: 20061208
  Serious: No
  Sender: FDA-Public Use
  Company Number: 06H-163-0308661-00

PATIENT
  Sex: 0

DRUGS (2)
  1. ETOPOSIDE [Suspect]
     Indication: NON-SMALL CELL LUNG CANCER
     Dosage: DAYS 1-3, INTRAVENOUS INFUSION
     Route: 042
  2. CISPLATIN [Suspect]
     Indication: NON-SMALL CELL LUNG CANCER
     Dosage: DAY 1, INTRAVENOUS INFUSION
     Route: 042

REACTIONS (2)
  - DRUG TOXICITY [None]
  - PARAESTHESIA [None]
